FAERS Safety Report 7128157-2 (Version None)
Quarter: 2010Q4

REPORT INFORMATION
  Report Type: 
  Country: None (occurrence: None)
  Receive Date: 20101112
  Receipt Date: 20101027
  Transmission Date: 20110411
  Serious: Yes (Death)
  Sender: FDA-Public Use
  Company Number: AE 2010-200

PATIENT
  Age: 65 Year
  Sex: Female
  Weight: 103.4201 kg

DRUGS (8)
  1. FAZACLO ODT [Suspect]
     Indication: SCHIZOPHRENIA, PARANOID TYPE
     Dosage: 350MG DAILY PO
     Route: 048
     Dates: start: 20080627, end: 20100719
  2. BENADRYL [Concomitant]
  3. HALDOL [Concomitant]
  4. HYDROCHLOROTHIAZIDE [Concomitant]
  5. LISINOPRIL [Concomitant]
  6. POTASSIUM CHLORIDE [Concomitant]
  7. FERROUS SULFATE [Concomitant]
  8. DILTIAZEM [Concomitant]

REACTIONS (1)
  - DEATH [None]
